FAERS Safety Report 20710098 (Version 1)
Quarter: 2022Q2

REPORT INFORMATION
  Report Type: Spontaneous
  Country: CN (occurrence: CN)
  Receive Date: 20220414
  Receipt Date: 20220414
  Transmission Date: 20220720
  Serious: Yes (Hospitalization, Other)
  Sender: FDA-Public Use
  Company Number: CN-009507513-2204CHN003980

PATIENT
  Age: 77 Year
  Sex: Male

DRUGS (1)
  1. CILASTATIN SODIUM\IMIPENEM [Suspect]
     Active Substance: CILASTATIN SODIUM\IMIPENEM
     Indication: Cholecystitis infective
     Dosage: 0.5 G, Q6H
     Route: 041
     Dates: start: 20220326, end: 20220328

REACTIONS (2)
  - Epilepsy [Recovering/Resolving]
  - Loss of consciousness [Recovered/Resolved]

NARRATIVE: CASE EVENT DATE: 20220328
